FAERS Safety Report 18027344 (Version 1)
Quarter: 2020Q3

REPORT INFORMATION
  Report Type: Spontaneous
  Country: CN (occurrence: CN)
  Receive Date: 20200715
  Receipt Date: 20200715
  Transmission Date: 20201103
  Serious: Yes (Hospitalization)
  Sender: FDA-Public Use
  Company Number: CN-B.I. PHARMACEUTICALS,INC./RIDGEFIELD-2020-BI-034710

PATIENT
  Age: 61 Year
  Sex: Male
  Weight: 60 kg

DRUGS (2)
  1. TRAJENTA [Suspect]
     Active Substance: LINAGLIPTIN
     Indication: BLOOD GLUCOSE ABNORMAL
     Route: 048
     Dates: start: 20190916, end: 20190918
  2. REGLINIDE [Suspect]
     Active Substance: REPAGLINIDE
     Indication: BLOOD GLUCOSE ABNORMAL
     Route: 048
     Dates: start: 20190915, end: 20190915

REACTIONS (2)
  - Pruritus [Recovering/Resolving]
  - Papule [Recovering/Resolving]

NARRATIVE: CASE EVENT DATE: 20190915
